FAERS Safety Report 8980650 (Version 1)
Quarter: 2012Q4

REPORT INFORMATION
  Report Type: 
  Country: US (occurrence: US)
  Receive Date: 20121221
  Receipt Date: 20121221
  Transmission Date: 20130627
  Serious: Yes (Other)
  Sender: FDA-Public Use
  Company Number: PHEH2012US024801

PATIENT
  Sex: Male

DRUGS (1)
  1. TOBI [Suspect]
     Indication: PNEUMONITIS
     Dosage: 300 mg, BID
     Dates: start: 20120305

REACTIONS (1)
  - Vocal cord thickening [Not Recovered/Not Resolved]
